FAERS Safety Report 13355637 (Version 1)
Quarter: 2017Q1

REPORT INFORMATION
  Report Type: Spontaneous
  Country: US (occurrence: US)
  Receive Date: 20170321
  Receipt Date: 20170321
  Transmission Date: 20170429
  Serious: No
  Sender: FDA-Public Use
  Company Number: US-BAUSCH-BL-2016-004491

PATIENT
  Age: 19 Year
  Sex: Female

DRUGS (1)
  1. RETIN-A MICRO [Suspect]
     Active Substance: TRETINOIN
     Indication: ACNE
     Route: 061
     Dates: start: 20160213, end: 20160215

REACTIONS (3)
  - Burning sensation [Unknown]
  - Acne [Recovering/Resolving]
  - Sensitisation [Unknown]

NARRATIVE: CASE EVENT DATE: 20160214
